FAERS Safety Report 7064587-5 (Version None)
Quarter: 2010Q4

REPORT INFORMATION
  Report Type: 
  Country: None (occurrence: None)
  Receive Date: 20101027
  Receipt Date: 20101020
  Transmission Date: 20110411
  Serious: No
  Sender: FDA-Public Use
  Company Number: US-BAYER-201037656NA

PATIENT

DRUGS (1)
  1. LEUKINE [Suspect]
     Indication: CHEMOTHERAPY CYTOKINE PROPHYLAXIS

REACTIONS (5)
  - BACK PAIN [None]
  - CHEST PAIN [None]
  - CHILLS [None]
  - DYSPNOEA [None]
  - PYREXIA [None]
